FAERS Safety Report 23049412 (Version 1)
Quarter: 2023Q4

REPORT INFORMATION
  Report Type: Spontaneous
  Country: US (occurrence: None)
  Receive Date: 20231006
  Receipt Date: 20231006
  Transmission Date: 20240109
  Serious: Yes (Hospitalization)
  Sender: FDA-Public Use
  Company Number: None

PATIENT
  Sex: Female

DRUGS (3)
  1. OXBRYTA [Suspect]
     Active Substance: VOXELOTOR
     Indication: Sickle cell anaemia
     Dosage: FREQUENCY : DAILY;?
     Route: 048
     Dates: start: 202104
  2. UPTRAVI [Concomitant]
     Active Substance: SELEXIPAG
  3. DEFERASIROX [Concomitant]
     Active Substance: DEFERASIROX

REACTIONS (4)
  - Osteomyelitis [None]
  - Therapy interrupted [None]
  - Oxygen saturation decreased [None]
  - Dyspnoea [None]
